FAERS Safety Report 5403450-X (Version None)
Quarter: 2007Q3

REPORT INFORMATION
  Report Type: 
  Country: None (occurrence: None)
  Receive Date: 20070730
  Receipt Date: 20070713
  Transmission Date: 20080115
  Serious: Yes (Other)
  Sender: FDA-Public Use
  Company Number: 2007EU001576

PATIENT
  Age: 60 Year
  Sex: Male

DRUGS (3)
  1. PROGRAF [Suspect]
     Indication: RENAL TRANSPLANT
     Dosage: 5 MG, , ORAL; 1 MG, , ORAL
     Route: 048
  2. MYCOPHENOLATE MOFETIL [Suspect]
     Indication: RENAL TRANSPLANT
     Dosage: 500 MG, BID, ORAL; 1 MG, BID, ORAL
     Route: 048
  3. PREDNISONE TAB [Suspect]
     Indication: RENAL TRANSPLANT
     Dosage: 5 MG, , ORAL
     Route: 048

REACTIONS (4)
  - ALTERNARIA INFECTION [None]
  - DISEASE RECURRENCE [None]
  - FUNGAL SKIN INFECTION [None]
  - GLOMERULONEPHRITIS PROLIFERATIVE [None]
